FAERS Safety Report 14370392 (Version 1)
Quarter: 2018Q1

REPORT INFORMATION
  Report Type: Spontaneous
  Country: US (occurrence: US)
  Receive Date: 20180110
  Receipt Date: 20180110
  Transmission Date: 20180509
  Serious: Yes (Other)
  Sender: FDA-Public Use
  Company Number: US-GLENMARK PHARMACEUTICALS-2017GMK030537

PATIENT
  Age: 76 Year
  Sex: Male

DRUGS (2)
  1. LIDOCAINE. [Suspect]
     Active Substance: LIDOCAINE
     Indication: EPIDURAL TEST DOSE
     Dosage: 3 ML, TEST DOSE
     Route: 050
  2. EPINEPHRINE. [Suspect]
     Active Substance: EPINEPHRINE
     Indication: EPIDURAL TEST DOSE
     Dosage: 1:200000, UNK
     Route: 050

REACTIONS (13)
  - Fall [Recovered/Resolved]
  - Pulse abnormal [Recovered/Resolved]
  - Blood pressure abnormal [Recovered/Resolved]
  - Dizziness [Recovered/Resolved]
  - Nausea [Unknown]
  - Incorrect route of drug administration [Unknown]
  - Paraesthesia [Recovered/Resolved]
  - Muscular weakness [Recovered/Resolved]
  - Anal incontinence [Recovered/Resolved]
  - Sensory loss [Recovered/Resolved]
  - Ventricular extrasystoles [Recovered/Resolved]
  - Bradycardia [Recovered/Resolved]
  - Supraventricular extrasystoles [Recovered/Resolved]
